FAERS Safety Report 5483961-1 (Version None)
Quarter: 2007Q4

REPORT INFORMATION
  Report Type: 
  Country: None (occurrence: None)
  Receive Date: 20071012
  Receipt Date: 20070927
  Transmission Date: 20080405
  Serious: Yes (Other)
  Sender: FDA-Public Use
  Company Number: US-ROCHE-522086

PATIENT
  Sex: Male
  Weight: 2.3 kg

DRUGS (5)
  1. SAQUINAVIR [Suspect]
     Indication: DRUG USE FOR UNKNOWN INDICATION
  2. NELFINAVIR [Suspect]
     Indication: DRUG USE FOR UNKNOWN INDICATION
  3. AZT [Suspect]
     Indication: DRUG USE FOR UNKNOWN INDICATION
  4. DDI [Suspect]
     Indication: DRUG USE FOR UNKNOWN INDICATION
  5. 3TC [Suspect]
     Indication: DRUG USE FOR UNKNOWN INDICATION

REACTIONS (1)
  - STILLBIRTH [None]
